FAERS Safety Report 7897944-5 (Version None)
Quarter: 2011Q4

REPORT INFORMATION
  Report Type: 
  Country: None (occurrence: None)
  Receive Date: 20111107
  Receipt Date: 20111028
  Transmission Date: 20120403
  Serious: Yes (Other)
  Sender: FDA-Public Use
  Company Number: US-SANOFI-AVENTIS-2011SA069959

PATIENT
  Sex: Male

DRUGS (3)
  1. LIPITOR [Concomitant]
  2. LANTUS [Suspect]
     Route: 058
     Dates: start: 20040301
  3. NOVOLOG MIX 70/30 [Suspect]
     Route: 065
     Dates: start: 20040301

REACTIONS (4)
  - HYPERGLYCAEMIA [None]
  - GALLOP RHYTHM PRESENT [None]
  - CARDIAC FAILURE CONGESTIVE [None]
  - HYPOGLYCAEMIA [None]
